FAERS Safety Report 5625711-1 (Version None)
Quarter: 2008Q1

REPORT INFORMATION
  Report Type: 
  Country: None (occurrence: None)
  Receive Date: 20080214
  Receipt Date: 20080207
  Transmission Date: 20080703
  Serious: Yes (Other)
  Sender: FDA-Public Use
  Company Number: US-BAYER-US-2007-013145

PATIENT
  Age: 54 Year
  Sex: Male
  Weight: 71 kg

DRUGS (3)
  1. MAGNEVIST [Suspect]
     Indication: NUCLEAR MAGNETIC RESONANCE IMAGING
     Dosage: TOTAL DAILY DOSE: 14 ML  UNIT DOSE: 14 ML
     Route: 042
     Dates: start: 20030218, end: 20030218
  2. MAGNEVIST [Suspect]
     Dosage: TOTAL DAILY DOSE: 14 ML  UNIT DOSE: 14 ML
     Route: 042
     Dates: start: 20051208, end: 20051208
  3. MAGNEVIST [Suspect]
     Dosage: TOTAL DAILY DOSE: 20 ML  UNIT DOSE: 20 ML
     Route: 042
     Dates: start: 20061216, end: 20061216

REACTIONS (3)
  - MASS [None]
  - NEPHROGENIC SYSTEMIC FIBROSIS [None]
  - UPPER EXTREMITY MASS [None]
